FAERS Safety Report 10724536 (Version 2)
Quarter: 2015Q1

REPORT INFORMATION
  Report Type: Spontaneous
  Country: US (occurrence: US)
  Receive Date: 20150120
  Receipt Date: 20150303
  Transmission Date: 20150721
  Serious: Yes (Other)
  Sender: FDA-Public Use
  Company Number: US-IMPAX LABORATORIES, INC-2015-IPXL-00008

PATIENT
  Age: 46 Year
  Sex: Male

DRUGS (2)
  1. LIBIDO-MAX (YOHIMBINE) [Interacting]
     Active Substance: DIETARY SUPPLEMENT
     Indication: ERECTILE DYSFUNCTION
     Route: 065
  2. CLONIDINE HYDROCHLORIDE. [Suspect]
     Active Substance: CLONIDINE HYDROCHLORIDE
     Indication: HYPERTENSION
     Dosage: 0.3 MG, TWO SERIAL DOSES
     Route: 048

REACTIONS (3)
  - Drug interaction [Unknown]
  - Drug resistance [Unknown]
  - Withdrawal hypertension [Recovered/Resolved]
